FAERS Safety Report 19080258 (Version 1)
Quarter: 2021Q1

REPORT INFORMATION
  Report Type: Other
  Country: FR (occurrence: FR)
  Receive Date: 20210331
  Receipt Date: 20210331
  Transmission Date: 20210420
  Serious: Yes (Hospitalization)
  Sender: FDA-Public Use
  Company Number: FR-VALIDUS PHARMACEUTICALS LLC-FR-2021VAL000808

PATIENT
  Age: 72 Year
  Sex: Male
  Weight: 76 kg

DRUGS (2)
  1. TAVANIC [Suspect]
     Active Substance: LEVOFLOXACIN
     Indication: INFECTION
     Dosage: 750 MG, UNK
     Route: 048
     Dates: start: 20190326, end: 20190410
  2. CEFOTAXIME SODIUM [Suspect]
     Active Substance: CEFOTAXIME SODIUM
     Indication: INFECTION
     Dosage: 100 MG/KG, UNK
     Route: 042
     Dates: start: 20190325, end: 20190408

REACTIONS (1)
  - Confusional state [Recovering/Resolving]

NARRATIVE: CASE EVENT DATE: 20190404
